FAERS Safety Report 9498553 (Version 3)
Quarter: 2013Q4

REPORT INFORMATION
  Report Type: Spontaneous
  Country: US (occurrence: US)
  Receive Date: 20130904
  Receipt Date: 20131115
  Transmission Date: 20140711
  Serious: No
  Sender: FDA-Public Use
  Company Number: US-PFIZER INC-2013254845

PATIENT
  Age: 41 Year
  Sex: Male
  Weight: 70.3 kg

DRUGS (2)
  1. PRISTIQ [Suspect]
     Indication: DEPRESSION
     Dosage: 50 MG, 1X/DAY
     Route: 048
  2. INSULIN [Concomitant]
     Indication: TYPE 1 DIABETES MELLITUS
     Dosage: UNK

REACTIONS (3)
  - Drug withdrawal syndrome [Not Recovered/Not Resolved]
  - Dizziness [Unknown]
  - Abdominal pain upper [Unknown]
